FAERS Safety Report 20420239 (Version 2)
Quarter: 2022Q1

REPORT INFORMATION
  Report Type: Other
  Country: PT (occurrence: PT)
  Receive Date: 20220203
  Receipt Date: 20220217
  Transmission Date: 20220423
  Serious: Yes (Hospitalization, Other)
  Sender: FDA-Public Use
  Company Number: PT-DEXPHARM-20220126

PATIENT
  Age: 60 Year
  Sex: Female

DRUGS (6)
  1. SERTRALINE [Suspect]
     Active Substance: SERTRALINE HYDROCHLORIDE
  2. VENLAFAXINE [Suspect]
     Active Substance: VENLAFAXINE HYDROCHLORIDE
  3. MIRTAZAPINE [Suspect]
     Active Substance: MIRTAZAPINE
  4. TRAZODONE [Suspect]
     Active Substance: TRAZODONE HYDROCHLORIDE
  5. ARIPIPRAZOLE [Suspect]
     Active Substance: ARIPIPRAZOLE
  6. AMISULPRIDE [Suspect]
     Active Substance: AMISULPRIDE

REACTIONS (2)
  - Pseudodementia [Recovered/Resolved]
  - Drug ineffective [Recovered/Resolved]
